FAERS Safety Report 20098490 (Version 1)
Quarter: 2021Q4

REPORT INFORMATION
  Report Type: Spontaneous
  Country: DE (occurrence: DE)
  Receive Date: 20211122
  Receipt Date: 20211122
  Transmission Date: 20220303
  Serious: Yes (Hospitalization, Other)
  Sender: FDA-Public Use
  Company Number: DE-TEVA-2021-DE-1949118

PATIENT
  Sex: Male

DRUGS (2)
  1. CIPROFLOXACIN [Suspect]
     Active Substance: CIPROFLOXACIN
     Indication: Product used for unknown indication
     Dosage: UNK
     Dates: start: 2018
  2. LEVOFLOXACIN [Suspect]
     Active Substance: LEVOFLOXACIN
     Indication: Urinary tract infection
     Dosage: UNK
     Route: 048
     Dates: start: 201412

REACTIONS (8)
  - Arthropathy [Unknown]
  - Cardiac neoplasm malignant [Unknown]
  - Fracture of penis [Unknown]
  - Impaired work ability [Unknown]
  - Arrhythmia [Unknown]
  - Product prescribing issue [Unknown]
  - Peyronie^s disease [Unknown]
  - Tendon discomfort [Unknown]
